FAERS Safety Report 5804724-0 (Version None)
Quarter: 2008Q3

REPORT INFORMATION
  Report Type: 
  Country: None (occurrence: None)
  Receive Date: 20080709
  Receipt Date: 20080703
  Transmission Date: 20090109
  Serious: Yes (Hospitalization)
  Sender: FDA-Public Use
  Company Number: PHHO2006DE03126

PATIENT
  Sex: Male
  Weight: 70 kg

DRUGS (5)
  1. ZOMETA [Suspect]
  2. TASIGNA [Suspect]
     Indication: SYSTEMIC MASTOCYTOSIS
     Dosage: 800 MG, QD
     Route: 048
     Dates: start: 20051102
  3. NOVALGIN [Concomitant]
     Dates: start: 20070612
  4. TEGRETOL-XR [Concomitant]
     Dates: start: 20070905
  5. HYDROMORPHONE HCL [Concomitant]
     Dosage: 32 MG DAILY
     Route: 048
     Dates: start: 20070905

REACTIONS (5)
  - MEDICAL DEVICE COMPLICATION [None]
  - MEDICAL DEVICE IMPLANTATION [None]
  - OSTEOMYELITIS [None]
  - OSTEOSYNTHESIS [None]
  - SURGERY [None]
